FAERS Safety Report 6555484-X (Version None)
Quarter: 2010Q1

REPORT INFORMATION
  Report Type: 
  Country: None (occurrence: None)
  Receive Date: 20100128
  Receipt Date: 20100119
  Transmission Date: 20100710
  Serious: Yes (Hospitalization, Other)
  Sender: FDA-Public Use
  Company Number: US-SANOFI-AVENTIS-2010SA004037

PATIENT
  Age: 76 Year
  Sex: Female
  Weight: 70.29 kg

DRUGS (8)
  1. PLAVIX [Suspect]
     Route: 048
     Dates: start: 20030101
  2. PLAVIX [Suspect]
     Route: 048
     Dates: start: 20030101
  3. SYNTHROID [Concomitant]
  4. NORVASC [Concomitant]
  5. RANITIDINE [Concomitant]
  6. GEMFIBROZIL [Concomitant]
  7. ASPIRIN [Concomitant]
  8. VITAMIN D [Concomitant]
     Dosage: DOSE:50000 UNIT(S)

REACTIONS (3)
  - CAROTID ARTERY OCCLUSION [None]
  - CORONARY ARTERY OCCLUSION [None]
  - INTESTINAL OBSTRUCTION [None]
